FAERS Safety Report 8842714 (Version 1)
Quarter: 2012Q4

REPORT INFORMATION
  Report Type: Report from Study
  Country: DE (occurrence: DE)
  Receive Date: 20121016
  Receipt Date: 20121016
  Transmission Date: 20130627
  Serious: Yes (Hospitalization)
  Sender: FDA-Public Use
  Company Number: DE-BRISTOL-MYERS SQUIBB COMPANY-16986135

PATIENT
  Age: 69 Year
  Sex: Male
  Weight: 80 kg

DRUGS (4)
  1. CETUXIMAB [Suspect]
     Indication: HEAD AND NECK CANCER
     Dosage: recent dose prior to events: 03Sep2012
     Dates: start: 20120903
  2. CISPLATIN [Suspect]
     Indication: HEAD AND NECK CANCER
     Dosage: recent administered date-11Sep12
     Dates: start: 20120903
  3. DOCETAXEL [Suspect]
     Indication: HEAD AND NECK CANCER
     Dosage: recent administered date-11Sep12
     Dates: start: 20120903
  4. 5-FLUOROURACIL [Suspect]
     Indication: HEAD AND NECK CANCER
     Dosage: recent administered date-11Sep12
     Dates: start: 20120903

REACTIONS (3)
  - Febrile neutropenia [Recovered/Resolved]
  - Diarrhoea [Recovered/Resolved with Sequelae]
  - Megacolon [Not Recovered/Not Resolved]
